FAERS Safety Report 15272303 (Version 1)
Quarter: 2018Q3

REPORT INFORMATION
  Report Type: Spontaneous
  Country: US (occurrence: US)
  Receive Date: 20180813
  Receipt Date: 20180813
  Transmission Date: 20181010
  Serious: Yes (Other)
  Sender: FDA-Public Use
  Company Number: US-ALLERGAN-1839590US

PATIENT
  Age: 47 Year
  Sex: Male

DRUGS (2)
  1. HYDROCORTISONE UNK [Suspect]
     Active Substance: HYDROCORTISONE
     Indication: COLITIS ULCERATIVE
     Dosage: 100 MG, QHS
     Route: 065
  2. MESALAMINE. [Concomitant]
     Active Substance: MESALAMINE
     Indication: COLITIS ULCERATIVE
     Dosage: 1200 MG, QD
     Route: 065

REACTIONS (1)
  - Chorioretinopathy [Recovering/Resolving]
